FAERS Safety Report 4925239-8 (Version None)
Quarter: 2006Q1

REPORT INFORMATION
  Report Type: 
  Country: None (occurrence: None)
  Receive Date: 20060223
  Receipt Date: 20060223
  Transmission Date: 20060701
  Serious: Yes (Other)
  Sender: FDA-Public Use
  Company Number: None

PATIENT
  Age: 74 Year
  Sex: Male

DRUGS (5)
  1. NIFEDIPINE [Suspect]
     Indication: HYPERTENSION
     Dosage: TAKE 1 TABLET DAILY-ORAL
     Route: 048
     Dates: start: 20040801
  2. ZYRTEC [Concomitant]
  3. LIDODERM PATCH [Concomitant]
  4. PROTONIX [Concomitant]
  5. LIPITOR [Concomitant]

REACTIONS (2)
  - BLOOD PRESSURE INADEQUATELY CONTROLLED [None]
  - BLOOD PRESSURE INCREASED [None]
